FAERS Safety Report 25803744 (Version 1)
Quarter: 2025Q3

REPORT INFORMATION
  Report Type: Spontaneous
  Country: EU (occurrence: EU)
  Receive Date: 20250915
  Receipt Date: 20250915
  Transmission Date: 20251020
  Serious: Yes (Death, Life-Threatening, Hospitalization, Other)
  Sender: B. BRAUN MEDICAL INC.
  Company Number: EU-B. Braun Medical Inc.-FR-BBM-202503516

PATIENT
  Age: 59 Year
  Sex: Female
  Weight: 68 kg

DRUGS (4)
  1. ACETAMINOPHEN [Suspect]
     Active Substance: ACETAMINOPHEN
     Indication: Intentional overdose
  2. MIRTAZAPINE [Suspect]
     Active Substance: MIRTAZAPINE
     Indication: Intentional overdose
  3. OXAZEPAM [Suspect]
     Active Substance: OXAZEPAM
     Indication: Intentional overdose
  4. ZOPICLONE [Suspect]
     Active Substance: ZOPICLONE
     Indication: Intentional overdose

REACTIONS (4)
  - Overdose [Fatal]
  - Toxicity to various agents [Fatal]
  - Bezoar [Fatal]
  - Multiple organ dysfunction syndrome [Fatal]
